FAERS Safety Report 8596827-5 (Version None)
Quarter: 2012Q3

REPORT INFORMATION
  Report Type: 
  Country: None (occurrence: None)
  Receive Date: 20120815
  Receipt Date: 20120807
  Transmission Date: 20120928
  Serious: Yes (Hospitalization)
  Sender: FDA-Public Use
  Company Number: GB-JNJFOC-20120805246

PATIENT
  Sex: Male
  Weight: 80.6 kg

DRUGS (4)
  1. STELARA [Suspect]
     Indication: PSORIASIS
     Route: 058
     Dates: start: 20100219, end: 20100419
  2. CYCLOSPORINE [Concomitant]
     Route: 065
     Dates: start: 20100608, end: 20101015
  3. CYCLOSPORINE [Concomitant]
     Route: 065
     Dates: start: 20101015
  4. METHOTREXATE [Concomitant]
     Route: 065
     Dates: start: 20080101, end: 20100819

REACTIONS (2)
  - SQUAMOUS CELL CARCINOMA [None]
  - ACTINIC KERATOSIS [None]
